FAERS Safety Report 5728832-8 (Version None)
Quarter: 2008Q2

REPORT INFORMATION
  Report Type: 
  Country: None (occurrence: None)
  Receive Date: 20080506
  Receipt Date: 20080424
  Transmission Date: 20081010
  Serious: Yes (Life-Threatening)
  Sender: FDA-Public Use
  Company Number: GB-ELI_LILLY_AND_COMPANY-GB200804006679

PATIENT
  Age: 51 Year
  Sex: Male
  Weight: 72.2 kg

DRUGS (7)
  1. ALIMTA [Suspect]
     Indication: MESOTHELIOMA
     Dosage: 940 MG, 200 (DOSAGE/INTERVAL)
     Route: 042
     Dates: start: 20080403, end: 20080403
  2. CISPLATIN [Concomitant]
     Indication: MESOTHELIOMA
     Dosage: 140 MG, UNK
     Route: 042
     Dates: start: 20080403, end: 20080403
  3. CARBOPLATIN [Concomitant]
     Dosage: UNK, UNKNOWN
     Dates: start: 20070918, end: 20080208
  4. DEXAMETHASONE [Concomitant]
     Dosage: 4 MG, 2/1DAYS
     Route: 048
  5. FOLIC ACID [Concomitant]
     Dosage: 400 MG, UNK
     Route: 048
     Dates: start: 20080221
  6. GEMCITABINE [Concomitant]
     Dosage: UNK, UNKNOWN
     Dates: start: 20070918, end: 20080208
  7. VITAMIN B-12 [Concomitant]
     Dosage: 1000 UG, UNK
     Route: 030
     Dates: start: 20080227

REACTIONS (3)
  - ABDOMINAL PAIN [None]
  - CHEST DISCOMFORT [None]
  - FLUSHING [None]
